FAERS Safety Report 7674930-1 (Version None)
Quarter: 2011Q3

REPORT INFORMATION
  Report Type: 
  Country: None (occurrence: None)
  Receive Date: 20110810
  Receipt Date: 20110720
  Transmission Date: 20111222
  Serious: Yes (Other)
  Sender: FDA-Public Use
  Company Number: PHHY2011AT66190

PATIENT
  Sex: Female
  Weight: 100 kg

DRUGS (10)
  1. PACLITAXEL [Suspect]
     Dosage: 970 MG, UNK
     Route: 042
     Dates: start: 20110706
  2. CARBOPLATIN [Suspect]
     Indication: OVARIAN CANCER
     Dosage: 370 MG, UNK
     Route: 042
     Dates: start: 20110407
  3. CARBOPLATIN [Suspect]
     Dosage: 370 MG, UNK
     Route: 042
     Dates: start: 20110706
  4. PACLITAXEL [Suspect]
     Indication: OVARIAN CANCER
     Dosage: 970 MG, UNK
     Route: 042
     Dates: start: 20110407
  5. PACLITAXEL [Suspect]
     Dosage: 970 MG, UNK
     Route: 042
     Dates: start: 20110428
  6. PACLITAXEL [Suspect]
     Dosage: 970 MG, UNK
     Route: 042
     Dates: start: 20110615
  7. CARBOPLATIN [Suspect]
     Dosage: 370 MG, UNK
     Route: 042
     Dates: start: 20110520
  8. PACLITAXEL [Suspect]
     Dosage: 970 MG, UNK
     Route: 042
     Dates: start: 20110520
  9. CARBOPLATIN [Suspect]
     Dosage: 370 MG, UNK
     Route: 042
     Dates: start: 20110615
  10. CARBOPLATIN [Suspect]
     Dosage: 370 MG, UNK
     Route: 042
     Dates: start: 20110428

REACTIONS (5)
  - NERVOUS SYSTEM DISORDER [None]
  - PARAESTHESIA [None]
  - MYALGIA [None]
  - ARTHRALGIA [None]
  - COORDINATION ABNORMAL [None]
